FAERS Safety Report 6016134-4 (Version None)
Quarter: 2008Q4

REPORT INFORMATION
  Report Type: 
  Country: None (occurrence: None)
  Receive Date: 20081222
  Receipt Date: 20081215
  Transmission Date: 20090506
  Serious: Yes (Hospitalization)
  Sender: FDA-Public Use
  Company Number: US-ABBOTT-08P-163-0493142-00

PATIENT
  Sex: Female

DRUGS (1)
  1. ERYTHROMYCIN [Suspect]
     Indication: SKIN INFECTION
     Dates: start: 20081111, end: 20081119

REACTIONS (3)
  - ERYTHEMA [None]
  - INFECTION [None]
  - STAPHYLOCOCCAL INFECTION [None]
